FAERS Safety Report 15678325 (Version 1)
Quarter: 2018Q4

REPORT INFORMATION
  Report Type: Spontaneous
  Country: US (occurrence: US)
  Receive Date: 20181201
  Receipt Date: 20181201
  Transmission Date: 20190205
  Serious: No
  Sender: FDA-Public Use
  Company Number: US-TEVA-2018-US-974938

PATIENT
  Age: 7 Year
  Sex: Male

DRUGS (1)
  1. TEVA METHYLPHENIDATE HCL ER CAP [Suspect]
     Active Substance: METHYLPHENIDATE HYDROCHLORIDE
     Indication: ATTENTION DEFICIT/HYPERACTIVITY DISORDER

REACTIONS (4)
  - Attention deficit/hyperactivity disorder [Unknown]
  - Product storage error [Unknown]
  - Product packaging quantity issue [Unknown]
  - Drug ineffective [Unknown]

NARRATIVE: CASE EVENT DATE: 20181021
